FAERS Safety Report 18908729 (Version 2)
Quarter: 2021Q2

REPORT INFORMATION
  Report Type: Report from Study
  Country: CA (occurrence: CA)
  Receive Date: 20210218
  Receipt Date: 20210624
  Transmission Date: 20210717
  Serious: Yes (Other)
  Sender: FDA-Public Use
  Company Number: CA-TAKEDA-2020TUS053148

PATIENT
  Age: 57 Year
  Sex: Female
  Weight: 58 kg

DRUGS (21)
  1. TEDUGLUTIDE [Suspect]
     Active Substance: TEDUGLUTIDE
     Indication: SHORT-BOWEL SYNDROME
     Dosage: 2.90 MILLIGRAM, QD
     Route: 065
     Dates: start: 20190104
  2. CLONAZEPAM AUDEN [Concomitant]
     Active Substance: CLONAZEPAM
     Dosage: 0.5 MILLIGRAM
     Route: 065
  3. MULTIVITAMIN [Concomitant]
     Active Substance: VITAMINS
     Dosage: AS NEEDED
     Route: 065
     Dates: start: 20200212
  4. DULOX [Concomitant]
     Dosage: 60 MILLIGRAM, QD
     Route: 065
  5. TEDUGLUTIDE [Suspect]
     Active Substance: TEDUGLUTIDE
     Indication: SHORT-BOWEL SYNDROME
     Dosage: 2.90 MILLIGRAM, QD
     Route: 065
     Dates: start: 20190104
  6. LOPERAMIDE [Concomitant]
     Active Substance: LOPERAMIDE
     Dosage: 6 MILLIGRAM, QID
     Route: 065
  7. DULOXETINE. [Concomitant]
     Active Substance: DULOXETINE
     Dosage: 60 MILLIGRAM, QD
     Route: 065
     Dates: start: 202006
  8. LOMOTIL [LOPERAMIDE HYDROCHLORIDE] [Concomitant]
     Active Substance: LOPERAMIDE HYDROCHLORIDE
     Dosage: 0.50 MILLIGRAM, QID
     Route: 065
  9. LANSOPRAZOLE. [Concomitant]
     Active Substance: LANSOPRAZOLE
     Dosage: 30 MILLIGRAM, QD
     Route: 065
  10. HYDROMORPHONE HCL [Concomitant]
     Active Substance: HYDROMORPHONE HYDROCHLORIDE
     Dosage: 1 MILLIGRAM
     Route: 065
  11. TEDUGLUTIDE [Suspect]
     Active Substance: TEDUGLUTIDE
     Indication: SHORT-BOWEL SYNDROME
     Dosage: 2.90 MILLIGRAM, QD
     Route: 065
     Dates: start: 20190104
  12. TEDUGLUTIDE [Suspect]
     Active Substance: TEDUGLUTIDE
     Indication: SHORT-BOWEL SYNDROME
     Dosage: 2.90 MILLIGRAM, QD
     Route: 065
     Dates: start: 20190104
  13. GABAPENTIN. [Concomitant]
     Active Substance: GABAPENTIN
     Dosage: 600 MILLIGRAM, TID
     Route: 065
  14. LORAZEPAM. [Concomitant]
     Active Substance: LORAZEPAM
     Indication: STRESS
     Dosage: 1 MILLIGRAM
     Route: 065
     Dates: start: 20200709
  15. MAGNESIUM AND POTASSIUM [Concomitant]
     Dosage: AS NEEDED
     Route: 065
     Dates: start: 20200212
  16. SODIUM CHLORIDE. [Concomitant]
     Active Substance: SODIUM CHLORIDE
     Dosage: UNK
     Route: 065
     Dates: start: 20200709
  17. DULOX [Concomitant]
     Dosage: 60 UNK
     Route: 048
     Dates: start: 202006
  18. MAGNESIUM AND POTASSIUM [Concomitant]
     Dosage: UNK
     Route: 065
     Dates: start: 20200709
  19. CELECOXIB. [Concomitant]
     Active Substance: CELECOXIB
     Dosage: 200 MILLIGRAM, QD
     Route: 065
  20. ESTROGEN [Concomitant]
     Active Substance: ESTROGENS
     Dosage: 0.6 MILLIGRAM, QD
     Route: 065
  21. ZYBAN [Concomitant]
     Active Substance: BUPROPION HYDROCHLORIDE
     Dosage: UNK
     Route: 065

REACTIONS (5)
  - Nausea [Recovered/Resolved]
  - Pyrexia [Recovered/Resolved]
  - Vascular device infection [Recovered/Resolved]
  - Chills [Recovered/Resolved]
  - Product dose omission issue [Unknown]

NARRATIVE: CASE EVENT DATE: 202012
